FAERS Safety Report 4307973-6 (Version None)
Quarter: 2004Q1

REPORT INFORMATION
  Report Type: 
  Country: None (occurrence: None)
  Receive Date: 20040301
  Receipt Date: 20030213
  Transmission Date: 20041129
  Serious: No
  Sender: FDA-Public Use
  Company Number: US-BRISTOL-MYERS SQUIBB COMPANY-12186540

PATIENT
  Age: 79 Year
  Sex: Male
  Weight: 102 kg

DRUGS (10)
  1. GLUCOPHAGE [Suspect]
     Indication: DIABETES MELLITUS
     Route: 048
  2. FUROSEMIDE [Concomitant]
  3. POTASSIUM [Concomitant]
  4. LISINOPRIL [Concomitant]
  5. FINASTERIDE [Concomitant]
  6. TERAZOSIN HCL [Concomitant]
  7. SIMVASTATIN [Concomitant]
  8. WARFARIN [Concomitant]
  9. INSULIN [Concomitant]
  10. SERTRALINE HCL [Concomitant]

REACTIONS (1)
  - DIARRHOEA [None]
